FAERS Safety Report 10239896 (Version 1)
Quarter: 2014Q2

REPORT INFORMATION
  Report Type: Spontaneous
  Country: US (occurrence: US)
  Receive Date: 20140616
  Receipt Date: 20140616
  Transmission Date: 20141212
  Serious: Yes (Hospitalization, Other)
  Sender: FDA-Public Use
  Company Number: US-ABBVIE-14P-163-1244886-00

PATIENT
  Sex: Female
  Weight: 64.01 kg

DRUGS (8)
  1. HUMIRA [Suspect]
     Indication: CROHN^S DISEASE
     Route: 058
     Dates: start: 20140228, end: 201405
  2. ZOFRAN [Concomitant]
     Indication: NAUSEA
  3. NORVASC [Concomitant]
     Indication: HYPERTENSION
  4. LISINOPRIL [Concomitant]
     Indication: HYPERTENSION
  5. FENOFIBRATE [Concomitant]
     Indication: DYSLIPIDAEMIA
  6. EFFEXOR [Concomitant]
     Indication: DEPRESSION
  7. ABILIFY [Concomitant]
     Indication: DEPRESSION
  8. NEXIUM [Concomitant]
     Indication: GASTROOESOPHAGEAL REFLUX DISEASE

REACTIONS (6)
  - Granuloma [Recovered/Resolved]
  - Pyrexia [Unknown]
  - Sepsis [Unknown]
  - Back pain [Unknown]
  - Abscess [Unknown]
  - Infection [Unknown]
